FAERS Safety Report 12081172 (Version 3)
Quarter: 2016Q1

REPORT INFORMATION
  Report Type: Spontaneous
  Country: FR (occurrence: FR)
  Receive Date: 20160216
  Receipt Date: 20160224
  Transmission Date: 20160526
  Serious: Yes (Hospitalization)
  Sender: FDA-Public Use
  Company Number: FR-TEVA-632978ISR

PATIENT
  Age: 81 Year
  Sex: Female

DRUGS (13)
  1. DOLIPRANE [Concomitant]
     Active Substance: ACETAMINOPHEN
     Dosage: 3 DOSAGE FORMS DAILY; SUSPENDED
  2. MOVICOL [Concomitant]
     Active Substance: POLYETHYLENE GLYCOL 3350\POTASSIUM CHLORIDE\SODIUM BICARBONATE\SODIUM CHLORIDE
     Dosage: 2 DOSAGE FORMS DAILY;
  3. FLUCORTAC  50 MCG [Concomitant]
     Dosage: 2 DOSAGE FORMS DAILY;
  4. KARDEGIC 160 MG [Concomitant]
     Dosage: 1 DOSAGE FORMS DAILY; SUSPENDED
  5. POTASSIUM GLUCONATE 15 ML [Concomitant]
     Dosage: 3 DOSAGE FORMS DAILY;
  6. RAMIPRIL 2.5 MG [Concomitant]
     Dosage: 1 DOSAGE FORMS DAILY;
  7. LOVENOX [Concomitant]
     Active Substance: ENOXAPARIN SODIUM
  8. CARBIDOPA LEVODOPA TEVA 25 MG/250 MG [Suspect]
     Active Substance: CARBIDOPA\LEVODOPA
     Dosage: 4 DOSAGE FORMS DAILY; LEVODOPA 250 MG AND CARBIDOPA 25 MG
     Route: 048
     Dates: start: 20160105, end: 20160108
  9. CHOLECALCIFEROL [Concomitant]
     Active Substance: CHOLECALCIFEROL
     Dosage: FORM: AMPOULE
  10. MIRTAZAPINE 15 MG [Concomitant]
     Active Substance: MIRTAZAPINE
     Dosage: 1 DOSAGE FORMS DAILY;
  11. FUROSEMIDE 40 MG [Concomitant]
     Active Substance: FUROSEMIDE
     Dosage: 2 DOSAGE FORMS DAILY;
  12. CEFTRIAXONE 1 G [Concomitant]
     Dosage: 1 DOSAGE FORMS DAILY;
  13. REFRESH [Concomitant]
     Active Substance: UNSPECIFIED INGREDIENT
     Dosage: 3 DOSAGE FORMS DAILY;

REACTIONS (4)
  - Somnolence [Recovered/Resolved]
  - Accidental overdose [None]
  - Extrapyramidal disorder [None]
  - Hypotonia [Recovered/Resolved]

NARRATIVE: CASE EVENT DATE: 20160107
